FAERS Safety Report 5395158-4 (Version None)
Quarter: 2007Q3

REPORT INFORMATION
  Report Type: 
  Country: None (occurrence: None)
  Receive Date: 20070724
  Receipt Date: 20070713
  Transmission Date: 20080115
  Serious: Yes (Life-Threatening)
  Sender: FDA-Public Use
  Company Number: JP-BAYER-200710444BYL

PATIENT
  Age: 70 Year
  Sex: Male
  Weight: 66 kg

DRUGS (3)
  1. CIPROXAN-I.V. [Suspect]
     Indication: SEPSIS
     Dosage: TOTAL DAILY DOSE: 600 MG  UNIT DOSE: 300 MG
     Route: 042
     Dates: start: 20070612, end: 20070621
  2. SULPERAZON [Concomitant]
     Route: 042
     Dates: start: 20070604, end: 20070605
  3. TAZOCIN [Concomitant]
     Route: 042
     Dates: start: 20070605, end: 20070611

REACTIONS (2)
  - PURPURA [None]
  - THROMBOCYTOPENIA [None]
